FAERS Safety Report 11531197 (Version 3)
Quarter: 2015Q4

REPORT INFORMATION
  Report Type: Spontaneous
  Country: JP (occurrence: JP)
  Receive Date: 20150921
  Receipt Date: 20151124
  Transmission Date: 20160304
  Serious: Yes (Hospitalization)
  Sender: FDA-Public Use
  Company Number: JP-AMGEN-JPNSP2015096544

PATIENT
  Age: 9 Decade
  Sex: Female
  Weight: 49 kg

DRUGS (9)
  1. ETODOLAC. [Concomitant]
     Active Substance: ETODOLAC
     Indication: SPINAL OSTEOARTHRITIS
     Dosage: 100 MG, QD
     Route: 048
     Dates: start: 20150805
  2. TIZANIDINE                         /00740702/ [Concomitant]
     Indication: SPINAL OSTEOARTHRITIS
     Dosage: 1 MG, QD
     Route: 048
     Dates: start: 20150731
  3. HALRACK [Concomitant]
     Active Substance: TRIAZOLAM
     Indication: INSOMNIA
     Dosage: 0.25 MG, QD
     Route: 048
     Dates: start: 20150731
  4. VITANEURIN                         /02072701/ [Concomitant]
     Indication: SPINAL OSTEOARTHRITIS
     Dosage: 50 MG, QD
     Route: 048
     Dates: start: 20150731
  5. FUROSEMIDE. [Concomitant]
     Active Substance: FUROSEMIDE
     Indication: HYPERTENSION
     Dosage: 10 MG, QD
     Route: 048
     Dates: start: 20150731
  6. AMLODIPINE                         /00972402/ [Concomitant]
     Active Substance: AMLODIPINE BESYLATE
     Indication: HYPERTENSION
     Dosage: 2.5 MG, QD
     Route: 048
     Dates: start: 20150731
  7. DENOTAS [Concomitant]
     Active Substance: CALCIUM CARBONATE\CHOLECALCIFEROL\MAGNESIUM CARBONATE
     Indication: OSTEOPOROSIS
     Dosage: 2 DF, QD
     Route: 048
     Dates: start: 20141218
  8. PRALIA [Suspect]
     Active Substance: DENOSUMAB
     Indication: OSTEOPOROSIS
     Dosage: 60 MG, UNK
     Route: 058
     Dates: start: 20150901, end: 20150901
  9. CALONAL [Concomitant]
     Active Substance: ACETAMINOPHEN
     Indication: SPINAL OSTEOARTHRITIS
     Dosage: 300 MG, TID
     Route: 048
     Dates: start: 20150805

REACTIONS (1)
  - Hypokalaemia [Recovered/Resolved]

NARRATIVE: CASE EVENT DATE: 20150902
